FAERS Safety Report 9265094 (Version 1)
Quarter: 2013Q2

REPORT INFORMATION
  Report Type: Spontaneous
  Country: GB (occurrence: None)
  Receive Date: 20130429
  Receipt Date: 20130429
  Transmission Date: 20140414
  Serious: Yes (Hospitalization)
  Sender: FDA-Public Use
  Company Number: FK201301285

PATIENT
  Age: 89 Year
  Sex: Female
  Weight: 40 kg

DRUGS (9)
  1. FUROSEMIDE (FUROSEMIDE) [Suspect]
     Indication: PRODUCT USED FOR UNKNOWN INDICATION
     Route: 048
     Dates: start: 20130405
  2. ADCAL-D3 [Suspect]
     Indication: OSTEOPOROSIS
     Route: 048
  3. LISINOPRIL (LISINOPRIL) [Suspect]
     Indication: PRODUCT USED FOR UNKNOWN INDICATION
     Route: 048
  4. ALENDRONIC ACID (ALENDRONIC ACID) [Concomitant]
  5. AMOXICILLIN (AMOXICILLIN) [Concomitant]
  6. CO-TENIDONE (TENORETIC) [Concomitant]
  7. LANSOPRAZOLE (LANSOPRAZOLE) [Concomitant]
  8. NITROFURANTOIN [Concomitant]
  9. SIMVASTATIN (SMIVASTATIN) [Concomitant]

REACTIONS (3)
  - Lung disorder [None]
  - Hypercalcaemia [None]
  - Renal failure acute [None]
